FAERS Safety Report 7786514-5 (Version None)
Quarter: 2011Q3

REPORT INFORMATION
  Report Type: 
  Country: None (occurrence: None)
  Receive Date: 20110929
  Receipt Date: 20110922
  Transmission Date: 20111222
  Serious: Yes (Hospitalization)
  Sender: FDA-Public Use
  Company Number: US-GLAXOSMITHKLINE-A0886953A

PATIENT
  Age: 55 Year
  Sex: Female
  Weight: 116.8 kg

DRUGS (11)
  1. VICODIN [Concomitant]
  2. LOTENSIN [Concomitant]
  3. TRAZODONE HYDROCHLORIDE [Concomitant]
  4. ALBUTEROL [Concomitant]
  5. NEURONTIN [Concomitant]
  6. HYDRALAZINE HCL [Concomitant]
  7. CLONIDINE [Concomitant]
  8. DURAGESIC-100 [Concomitant]
  9. LIPITOR [Concomitant]
  10. AVANDIA [Suspect]
     Indication: DIABETES MELLITUS
     Dosage: 4MG PER DAY
     Route: 048
  11. LEXAPRO [Concomitant]

REACTIONS (6)
  - MYOCARDIAL INFARCTION [None]
  - CORONARY ARTERY DISEASE [None]
  - LEFT VENTRICULAR DYSFUNCTION [None]
  - CARDIAC FAILURE CONGESTIVE [None]
  - TRANSIENT ISCHAEMIC ATTACK [None]
  - ATRIAL FIBRILLATION [None]
